FAERS Safety Report 4863888-6 (Version None)
Quarter: 2005Q4

REPORT INFORMATION
  Report Type: 
  Country: None (occurrence: None)
  Receive Date: 20051222
  Receipt Date: 20051212
  Transmission Date: 20060501
  Serious: Yes (Hospitalization, Other)
  Sender: FDA-Public Use
  Company Number: DE-NOVOPROD-249223

PATIENT
  Age: 62 Year
  Sex: Female
  Weight: 55 kg

DRUGS (6)
  1. NOVOSEVEN [Suspect]
     Indication: CEREBRAL HAEMORRHAGE
     Dosage: 80 UG/KG, SINGLE
     Route: 042
     Dates: start: 20051125, end: 20051125
  2. ESOMEPRAZOLE [Concomitant]
     Dosage: 40 MG, QD
     Route: 048
     Dates: start: 20051125
  3. LISINOPRIL [Concomitant]
     Dosage: 20 MG, QD
     Route: 048
     Dates: start: 20051129
  4. CEFOTAXIME [Concomitant]
     Dosage: 6 G, QD
     Route: 042
     Dates: start: 20051130, end: 20051208
  5. LUVASED [Concomitant]
     Dosage: 2 TAB, QD
     Route: 048
     Dates: start: 20051130
  6. PARACETAMOL [Concomitant]
     Dosage: 1 G, QD
     Route: 042
     Dates: start: 20051130, end: 20051204

REACTIONS (4)
  - BLOOD OSMOLARITY DECREASED [None]
  - BLOOD PRESSURE INCREASED [None]
  - HYPONATRAEMIA [None]
  - INAPPROPRIATE ANTIDIURETIC HORMONE SECRETION [None]
